FAERS Safety Report 5319395-X (Version None)
Quarter: 2007Q2

REPORT INFORMATION
  Report Type: 
  Country: None (occurrence: None)
  Receive Date: 20070508
  Receipt Date: 20070507
  Transmission Date: 20071010
  Serious: Yes (Hospitalization)
  Sender: FDA-Public Use
  Company Number: DE-BRISTOL-MYERS SQUIBB COMPANY-13771506

PATIENT
  Age: 73 Year
  Sex: Male

DRUGS (2)
  1. AMPICILLIN [Suspect]
     Indication: CHOLECYSTITIS
     Route: 042
  2. SULBACTAM [Suspect]
     Indication: CHOLECYSTITIS
     Route: 042

REACTIONS (3)
  - ACUTE GENERALISED EXANTHEMATOUS PUSTULOSIS [None]
  - HYPERSENSITIVITY [None]
  - LEUKOCYTOCLASTIC VASCULITIS [None]
